FAERS Safety Report 5492519-X (Version None)
Quarter: 2007Q4

REPORT INFORMATION
  Report Type: 
  Country: None (occurrence: None)
  Receive Date: 20071022
  Receipt Date: 20071011
  Transmission Date: 20080405
  Serious: Yes (Hospitalization)
  Sender: FDA-Public Use
  Company Number: CH-SHR-CH-2007-039063

PATIENT
  Age: 69 Year
  Sex: Female

DRUGS (5)
  1. SOTALOL HYDROCHLORIDE [Suspect]
     Route: 048
     Dates: end: 20070909
  2. TOREM                                   /GFR/ [Suspect]
     Indication: DIURETIC THERAPY
     Route: 048
     Dates: end: 20070909
  3. METOLAZONE [Suspect]
     Indication: DIURETIC THERAPY
     Route: 048
     Dates: end: 20070909
  4. HYDROCHLOROTHIAZIDE [Suspect]
     Indication: DIURETIC THERAPY
     Route: 048
     Dates: end: 20070909
  5. MARCUMAR [Concomitant]
     Indication: CARDIAC VALVE DISEASE
     Dosage: UNK, AS REQ'D
     Route: 048

REACTIONS (5)
  - ELECTROCARDIOGRAM QT PROLONGED [None]
  - HYPOKALAEMIA [None]
  - SUPRAVENTRICULAR EXTRASYSTOLES [None]
  - SYNCOPE [None]
  - VENTRICULAR EXTRASYSTOLES [None]
